FAERS Safety Report 19154769 (Version 3)
Quarter: 2021Q2

REPORT INFORMATION
  Report Type: Report from Study
  Country: DK (occurrence: DK)
  Receive Date: 20210419
  Receipt Date: 20210619
  Transmission Date: 20210717
  Serious: Yes (Hospitalization)
  Sender: FDA-Public Use
  Company Number: DK-AMGEN INC.-DNKCT2021057555

PATIENT
  Age: 69 Year
  Sex: Female

DRUGS (5)
  1. PANODIL [Concomitant]
     Active Substance: ACETAMINOPHEN
     Dosage: 1000 MILLIGRAM
     Dates: start: 20180301
  2. ERENUMAB [Suspect]
     Active Substance: ERENUMAB
     Indication: MIGRAINE
     Dosage: 1 MILLILITER
     Route: 058
     Dates: start: 20201229
  3. SUMATRIPTAN. [Concomitant]
     Active Substance: SUMATRIPTAN
     Dosage: 50 MILLIGRAM
     Dates: start: 20120625
  4. TREO [Concomitant]
     Active Substance: ASPIRIN\CAFFEINE
     Dosage: 1100 MILLIGRAM
     Dates: start: 2017
  5. PANTOPRAZOL [PANTOPRAZOLE] [Concomitant]
     Active Substance: PANTOPRAZOLE
     Dosage: 40 MILLIGRA
     Dates: start: 20160415

REACTIONS (1)
  - Cholelithiasis [Recovered/Resolved]

NARRATIVE: CASE EVENT DATE: 20210409
